FAERS Safety Report 6554016-X (Version None)
Quarter: 2010Q1

REPORT INFORMATION
  Report Type: 
  Country: None (occurrence: None)
  Receive Date: 20100125
  Receipt Date: 20100125
  Transmission Date: 20100710
  Serious: Yes (Life-Threatening)
  Sender: FDA-Public Use
  Company Number: None

PATIENT
  Age: 59 Year
  Sex: Male
  Weight: 56 kg

DRUGS (1)
  1. DOCETAXEL [Suspect]
     Indication: HEAD AND NECK CANCER
     Dosage: 100 MG ONE TIME INTRAVENOUS
     Route: 042
     Dates: start: 20100107

REACTIONS (2)
  - DYSPNOEA [None]
  - INFUSION RELATED REACTION [None]
